FAERS Safety Report 16439167 (Version 1)
Quarter: 2019Q2

REPORT INFORMATION
  Report Type: Report from Study
  Country: CN (occurrence: CN)
  Receive Date: 20190617
  Receipt Date: 20190617
  Transmission Date: 20190711
  Serious: Yes (Other)
  Sender: FDA-Public Use
  Company Number: CN-ROCHE-2333529

PATIENT
  Sex: Female

DRUGS (8)
  1. DEXAMETHASONE. [Concomitant]
     Active Substance: DEXAMETHASONE
     Indication: CERVIX CANCER METASTATIC
     Route: 048
  2. BEVACIZUMAB. [Suspect]
     Active Substance: BEVACIZUMAB
     Indication: CERVIX CANCER METASTATIC
     Route: 041
  3. FOLIC ACID. [Concomitant]
     Active Substance: FOLIC ACID
     Indication: CERVIX CANCER METASTATIC
     Route: 048
  4. PEMETREXED. [Suspect]
     Active Substance: PEMETREXED
     Indication: OFF LABEL USE
  5. PEMETREXED. [Suspect]
     Active Substance: PEMETREXED
     Indication: CERVIX CANCER METASTATIC
     Route: 041
  6. BEVACIZUMAB. [Suspect]
     Active Substance: BEVACIZUMAB
     Indication: OFF LABEL USE
  7. FOLIC ACID. [Concomitant]
     Active Substance: FOLIC ACID
     Indication: OFF LABEL USE
  8. DEXAMETHASONE. [Concomitant]
     Active Substance: DEXAMETHASONE
     Indication: OFF LABEL USE

REACTIONS (21)
  - Blood alkaline phosphatase abnormal [Unknown]
  - Intentional product use issue [Unknown]
  - Hypersensitivity [Unknown]
  - Aspartate aminotransferase increased [Unknown]
  - Neutrophil count decreased [Unknown]
  - Neurotoxicity [Unknown]
  - Skin lesion [Unknown]
  - Platelet count decreased [Unknown]
  - Anaemia [Unknown]
  - Cardiovascular disorder [Unknown]
  - Off label use [Unknown]
  - Hypertension [Unknown]
  - Embolism [Unknown]
  - Vaginal haemorrhage [Unknown]
  - Vomiting [Unknown]
  - Gastrointestinal disorder [Unknown]
  - Pain [Unknown]
  - Deep vein thrombosis [Unknown]
  - Nausea [Unknown]
  - White blood cell count decreased [Unknown]
  - Gastrointestinal haemorrhage [Unknown]
